FAERS Safety Report 6993658-4 (Version None)
Quarter: 2010Q3

REPORT INFORMATION
  Report Type: 
  Country: None (occurrence: None)
  Receive Date: 20100917
  Receipt Date: 20070601
  Transmission Date: 20110219
  Serious: Yes (Hospitalization, Other)
  Sender: FDA-Public Use
  Company Number: US-ASTRAZENECA-2006UW11462

PATIENT
  Age: 423 Month
  Sex: Female
  Weight: 99.8 kg

DRUGS (12)
  1. SEROQUEL [Suspect]
     Indication: INSOMNIA
     Route: 048
     Dates: start: 19980101, end: 20040101
  2. SEROQUEL [Suspect]
     Indication: MENTAL DISORDER
     Route: 048
     Dates: start: 19980101, end: 20040101
  3. SEROQUEL [Suspect]
     Dosage: 20 MG TO 300 MG
     Route: 048
     Dates: start: 20051003
  4. SEROQUEL [Suspect]
     Dosage: 20 MG TO 300 MG
     Route: 048
     Dates: start: 20051003
  5. GABAPENTIN [Concomitant]
     Route: 048
     Dates: start: 20051003
  6. DIOVAN [Concomitant]
     Dates: start: 20050718
  7. PREVACID [Concomitant]
     Dates: start: 20050718
  8. LAMICTAL [Concomitant]
     Dates: start: 20050718
  9. VICODIN [Concomitant]
     Dosage: 1 Q4H
     Dates: start: 20011121
  10. IBUPROFEN [Concomitant]
     Dates: start: 20011121
  11. LOPID [Concomitant]
     Dates: start: 20051003
  12. ZOLOFT [Concomitant]
     Dosage: 50 MG TO 100 MG
     Dates: start: 20011123

REACTIONS (3)
  - DIABETES MELLITUS [None]
  - SUICIDE ATTEMPT [None]
  - TYPE 2 DIABETES MELLITUS [None]
